FAERS Safety Report 21521312 (Version 1)
Quarter: 2022Q4

REPORT INFORMATION
  Report Type: Spontaneous
  Country: US (occurrence: US)
  Receive Date: 20221028
  Receipt Date: 20221028
  Transmission Date: 20230113
  Serious: Yes (Other)
  Sender: FDA-Public Use
  Company Number: US-SA-SAC20221026001427

PATIENT
  Age: 61 Year
  Sex: Male

DRUGS (1)
  1. ZANTAC [Suspect]
     Active Substance: RANITIDINE HYDROCHLORIDE
     Indication: Dyspepsia
     Dosage: 150 MG; QD
     Dates: start: 198001, end: 201912

REACTIONS (3)
  - Bladder cancer [Unknown]
  - Prostate cancer stage I [Unknown]
  - Skin cancer [Unknown]

NARRATIVE: CASE EVENT DATE: 20010101
